FAERS Safety Report 10188291 (Version 3)
Quarter: 2014Q3

REPORT INFORMATION
  Report Type: Report from Study
  Country: TR (occurrence: TR)
  Receive Date: 20140522
  Receipt Date: 20140707
  Transmission Date: 20150326
  Serious: Yes (Death, Hospitalization)
  Sender: FDA-Public Use
  Company Number: TR-US-EMD SERONO, INC.-7294005

PATIENT
  Sex: Female
  Weight: 75 kg

DRUGS (2)
  1. INSULIN [Concomitant]
     Active Substance: INSULIN NOS
     Indication: PRODUCT USED FOR UNKNOWN INDICATION
  2. REBIF [Suspect]
     Active Substance: INTERFERON BETA-1A
     Indication: MULTIPLE SCLEROSIS
     Dates: start: 201008

REACTIONS (5)
  - Musculoskeletal discomfort [Fatal]
  - Hypoglycaemia [Fatal]
  - Wound [Fatal]
  - Diabetic coma [Fatal]
  - Groin infection [Fatal]

NARRATIVE: CASE EVENT DATE: 20131225
